FAERS Safety Report 13061091 (Version 1)
Quarter: 2016Q4

REPORT INFORMATION
  Report Type: Report from Study
  Country: None (occurrence: CO)
  Receive Date: 20161226
  Receipt Date: 20161226
  Transmission Date: 20170207
  Serious: Yes (Other)
  Sender: FDA-Public Use
  Company Number: CO-ABBVIE-16K-036-1818609-00

PATIENT
  Age: 41 Year
  Sex: Male
  Weight: 70 kg

DRUGS (1)
  1. HUMIRA [Suspect]
     Active Substance: ADALIMUMAB
     Indication: ANKYLOSING SPONDYLITIS
     Route: 058
     Dates: start: 20130116, end: 20161128

REACTIONS (4)
  - Oral herpes [Recovering/Resolving]
  - Device loosening [Recovering/Resolving]
  - Device material issue [Recovering/Resolving]
  - Medical device pain [Recovering/Resolving]

NARRATIVE: CASE EVENT DATE: 20161210
